FAERS Safety Report 9865748 (Version 2)
Quarter: 2014Q1

REPORT INFORMATION
  Report Type: Spontaneous
  Country: US (occurrence: US)
  Receive Date: 20140203
  Receipt Date: 20140203
  Transmission Date: 20141002
  Serious: No
  Sender: FDA-Public Use
  Company Number: US-ALLERGAN-1310166US

PATIENT
  Age: 71 Year
  Sex: Female

DRUGS (5)
  1. RESTASIS [Suspect]
     Indication: DRY EYE
     Dosage: 2 GTT, BID
     Route: 047
     Dates: end: 20130629
  2. REFRESH PM [Suspect]
     Indication: DRY EYE
     Dosage: UNK, QHS
  3. LASTACAFT [Suspect]
     Indication: HYPERSENSITIVITY
     Dosage: 2 GTT, UNK
     Route: 047
  4. REFRESH OPTIVE ADVANCED [Suspect]
     Indication: PRODUCT USED FOR UNKNOWN INDICATION
     Dosage: 2 UNK, UNK
  5. GENTEAL EYE DROPS NOS [Concomitant]
     Indication: DRY EYE

REACTIONS (9)
  - Photophobia [Recovering/Resolving]
  - Eye infection [Recovered/Resolved]
  - Eyelid oedema [Recovered/Resolved]
  - Eye discharge [Recovered/Resolved]
  - Scleral hyperaemia [Recovered/Resolved]
  - Eye irritation [Recovering/Resolving]
  - Eye pain [Recovering/Resolving]
  - Hypersensitivity [Recovering/Resolving]
  - Eye discharge [Recovered/Resolved]
